FAERS Safety Report 8232983-6 (Version None)
Quarter: 2012Q1

REPORT INFORMATION
  Report Type: 
  Country: None (occurrence: None)
  Receive Date: 20120326
  Receipt Date: 20120312
  Transmission Date: 20120608
  Serious: Yes (Other)
  Sender: FDA-Public Use
  Company Number: US-JNJCP-30000095273

PATIENT
  Age: 49 Year
  Sex: Female
  Weight: 68 kg

DRUGS (2)
  1. NTG OIL-FREE ACNE WASH PNKGRPFRT FM SCRB USA 070501053607 [Suspect]
     Indication: ACNE
     Dosage: ABOUT A QUARTER SIZE AMOUNT ONCE WEEKLY
     Route: 061
  2. NONE [Concomitant]

REACTIONS (1)
  - PSORIASIS [None]
